FAERS Safety Report 8581572-2 (Version None)
Quarter: 2012Q3

REPORT INFORMATION
  Report Type: 
  Country: None (occurrence: None)
  Receive Date: 20120809
  Receipt Date: 20120731
  Transmission Date: 20120928
  Serious: Yes (Hospitalization)
  Sender: FDA-Public Use
  Company Number: IT-SANOFI-AVENTIS-2012SA054365

PATIENT
  Age: 55 Year

DRUGS (3)
  1. OXALIPLATIN [Suspect]
     Route: 042
  2. CAPECITABINE [Interacting]
     Dosage: DOSE : DRUG ADMINISTERED FOR 14 DAYS PER CYCLE
     Route: 048
  3. THERAPEUTIC RADIOPHARMACEUTICALS [Concomitant]

REACTIONS (12)
  - LEFT VENTRICULAR FAILURE [None]
  - DRUG INTERACTION [None]
  - DEMYELINATING POLYNEUROPATHY [None]
  - PARAPLEGIA [None]
  - BLOOD CREATINE PHOSPHOKINASE INCREASED [None]
  - DYSAESTHESIA [None]
  - ASTHENIA [None]
  - MUSCULAR WEAKNESS [None]
  - PARAESTHESIA [None]
  - DECREASED APPETITE [None]
  - EJECTION FRACTION DECREASED [None]
  - FATIGUE [None]
